FAERS Safety Report 19299633 (Version 3)
Quarter: 2021Q2

REPORT INFORMATION
  Report Type: Spontaneous
  Country: JP (occurrence: JP)
  Receive Date: 20210525
  Receipt Date: 20210611
  Transmission Date: 20210717
  Serious: Yes (Hospitalization, Other)
  Sender: FDA-Public Use
  Company Number: JP-UNITED THERAPEUTICS-UNT-2021-005830

PATIENT
  Age: 12 Month
  Sex: Male
  Weight: 6 kg

DRUGS (3)
  1. REMODULIN [Suspect]
     Active Substance: TREPROSTINIL
     Indication: PULMONARY ARTERIAL HYPERTENSION
     Dosage: UNK, CONTINUING AT RATE 0.5 MCL/HOUR
     Route: 058
     Dates: start: 20210311
  2. ADCIRCA [Concomitant]
     Active Substance: TADALAFIL
     Indication: PRODUCT USED FOR UNKNOWN INDICATION
     Dosage: UNK
     Route: 065
  3. OPSUMIT [Concomitant]
     Active Substance: MACITENTAN
     Indication: PRODUCT USED FOR UNKNOWN INDICATION
     Dosage: UNK
     Route: 065

REACTIONS (14)
  - Hypoxia [Unknown]
  - Fatigue [Unknown]
  - Loss of consciousness [Unknown]
  - Injection site pain [Unknown]
  - Injection site induration [Unknown]
  - Injection site swelling [Recovered/Resolved]
  - Injection site warmth [Recovered/Resolved]
  - Vomiting [Unknown]
  - Injection site haemorrhage [Recovering/Resolving]
  - Injection site erythema [Recovered/Resolved]
  - Injection site haemorrhage [Recovering/Resolving]
  - Pulmonary vein stenosis [Unknown]
  - Injection site induration [Recovering/Resolving]
  - Limb discomfort [Unknown]

NARRATIVE: CASE EVENT DATE: 202103
